FAERS Safety Report 7292372-8 (Version None)
Quarter: 2011Q1

REPORT INFORMATION
  Report Type: 
  Country: None (occurrence: None)
  Receive Date: 20110215
  Receipt Date: 20110201
  Transmission Date: 20110831
  Serious: Yes (Hospitalization)
  Sender: FDA-Public Use
  Company Number: JP-MYLANLABS-2011S1002282

PATIENT
  Age: 59 Year
  Sex: Male

DRUGS (2)
  1. FLUOROURACIL [Suspect]
     Indication: OESOPHAGEAL CANCER METASTATIC
     Dosage: DAYS 1-5
     Route: 065
  2. CISPLATIN [Concomitant]
     Indication: OESOPHAGEAL CANCER METASTATIC
     Dosage: DAY 1
     Route: 065

REACTIONS (1)
  - LEUKOENCEPHALOPATHY [None]
